FAERS Safety Report 25682469 (Version 2)
Quarter: 2025Q3

REPORT INFORMATION
  Report Type: Spontaneous
  Country: US (occurrence: US)
  Receive Date: 20250814
  Receipt Date: 20250826
  Transmission Date: 20251020
  Serious: Yes (Hospitalization, Disabling, Other)
  Sender: TEVA
  Company Number: US-TEVA-VS-3360152

PATIENT
  Age: 77 Year
  Sex: Male

DRUGS (5)
  1. FENTANYL [Suspect]
     Active Substance: FENTANYL
     Indication: Tumour pain
     Route: 037
  2. METHADONE [Suspect]
     Active Substance: METHADONE HYDROCHLORIDE
     Indication: Tumour pain
     Route: 037
  3. MORPHINE [Suspect]
     Active Substance: MORPHINE
     Indication: Tumour pain
     Route: 037
  4. HYDROMORPHONE [Suspect]
     Active Substance: HYDROMORPHONE
     Indication: Tumour pain
     Route: 037
  5. ZICONOTIDE [Suspect]
     Active Substance: ZICONOTIDE
     Indication: Tumour pain
     Route: 037

REACTIONS (6)
  - Drug intolerance [Unknown]
  - Histamine intolerance [Unknown]
  - Dizziness [Unknown]
  - Ataxia [Unknown]
  - Granuloma [Unknown]
  - Pruritus [Unknown]
